FAERS Safety Report 10353565 (Version 2)
Quarter: 2014Q3

REPORT INFORMATION
  Report Type: Spontaneous
  Country: US (occurrence: US)
  Receive Date: 20140731
  Receipt Date: 20140818
  Transmission Date: 20150326
  Serious: Yes (Other)
  Sender: FDA-Public Use
  Company Number: US-THROMBOGENICS INC.-JET-2014-441

PATIENT
  Age: 65 Year
  Sex: Female

DRUGS (5)
  1. POVIDINE HERBAL [Concomitant]
     Indication: PRODUCT USED FOR UNKNOWN INDICATION
     Dosage: 19 H, QD
     Route: 061
     Dates: start: 20140709, end: 20140709
  2. JETREA [Suspect]
     Active Substance: OCRIPLASMIN
     Indication: VITREOUS ADHESIONS
     Dosage: 0.125 MG, ONE TIME DOSE
     Route: 031
     Dates: start: 20140709, end: 20140709
  3. POLYMYXIN [Concomitant]
     Active Substance: POLYMYXIN
     Indication: PRODUCT USED FOR UNKNOWN INDICATION
     Dosage: 19 H, TID
     Route: 061
     Dates: start: 20140709, end: 20140709
  4. LIDOCAINE                          /00033402/ [Concomitant]
     Indication: PRODUCT USED FOR UNKNOWN INDICATION
     Dosage: 19 H, QD
     Route: 061
     Dates: start: 20140709, end: 20140709
  5. SIMVASTATIN. [Concomitant]
     Active Substance: SIMVASTATIN
     Indication: PRODUCT USED FOR UNKNOWN INDICATION
     Dosage: UNK
     Route: 048

REACTIONS (4)
  - Eye pain [Unknown]
  - Visual acuity reduced [Not Recovered/Not Resolved]
  - Subretinal fluid [Recovered/Resolved with Sequelae]
  - Anterior chamber inflammation [Recovered/Resolved]

NARRATIVE: CASE EVENT DATE: 2014
